FAERS Safety Report 25127778 (Version 2)
Quarter: 2025Q3

REPORT INFORMATION
  Report Type: Report from Study
  Country: US (occurrence: US)
  Receive Date: 20250327
  Receipt Date: 20250809
  Transmission Date: 20251021
  Serious: Yes (Hospitalization, Other)
  Sender: ALEXION PHARMACEUTICALS
  Company Number: US-AstraZeneca-CH-00831403A

PATIENT
  Age: 71 Year
  Sex: Male
  Weight: 45.805 kg

DRUGS (14)
  1. TEZEPELUMAB [Suspect]
     Active Substance: TEZEPELUMAB
     Indication: Asthma
     Route: 065
  2. TEZEPELUMAB [Suspect]
     Active Substance: TEZEPELUMAB
  3. TEZEPELUMAB [Suspect]
     Active Substance: TEZEPELUMAB
  4. FASENRA [Suspect]
     Active Substance: BENRALIZUMAB
     Indication: Asthma
     Dosage: 30 MILLIGRAM, Q4W FOR THE FIRST 3 DOSES THEREAFTER EVERY 8 WEEKS
     Dates: end: 20250317
  5. DUPIXENT [Suspect]
     Active Substance: DUPILUMAB
     Route: 065
  6. DALIRESP [Suspect]
     Active Substance: ROFLUMILAST
     Route: 065
  7. BREO ELLIPTA [Concomitant]
     Active Substance: FLUTICASONE FUROATE\VILANTEROL TRIFENATATE
  8. PREDNISONE [Concomitant]
     Active Substance: PREDNISONE
     Dosage: 10 MILLIGRAM, QD, TAKE 4 TABLET FOR 3 DAYS, THEN 3 TABLET FOR 3 DAYS, THEN 2 TABLET FOR 3 DAYS THEN 1 TABLET FOR 3 DAYS
     Dates: start: 20250122, end: 20250310
  9. AZITHROMYCIN [Concomitant]
     Active Substance: AZITHROMYCIN
  10. DALIRESP [Concomitant]
     Active Substance: ROFLUMILAST
     Dosage: 500 MICROGRAM, QD
     Dates: start: 20240718
  11. TRELEGY ELLIPTA [Concomitant]
     Active Substance: FLUTICASONE FUROATE\UMECLIDINIUM BROMIDE\VILANTEROL TRIFENATATE
     Dosage: UNK, QD, 100 MCG-62.5 MCS-25 MCG
     Dates: start: 20241030
  12. SPIRIVA [Concomitant]
     Active Substance: TIOTROPIUM BROMIDE MONOHYDRATE
  13. ALBUTEROL SULFATE [Concomitant]
     Active Substance: ALBUTEROL SULFATE
  14. MONTELUKAST [Concomitant]
     Active Substance: MONTELUKAST
     Dosage: 10 MILLIGRAM, QD
     Dates: start: 20240408

REACTIONS (17)
  - Enterovirus infection [Unknown]
  - Rhinovirus infection [Unknown]
  - T-cell lymphoma [Unknown]
  - Cutaneous T-cell lymphoma [Unknown]
  - Bronchiectasis [Unknown]
  - Pulmonary mass [Unknown]
  - Drug ineffective [Unknown]
  - Dyspnoea [Unknown]
  - Chronic obstructive pulmonary disease [Unknown]
  - Upper respiratory tract infection [Unknown]
  - Nasal congestion [Unknown]
  - Wheezing [Unknown]
  - Cough [Unknown]
  - Therapeutic response delayed [Unknown]
  - Asthma [Unknown]
  - Secretion discharge [Unknown]
  - Sputum retention [Unknown]
